FAERS Safety Report 6685978-8 (Version None)
Quarter: 2010Q2

REPORT INFORMATION
  Report Type: 
  Country: None (occurrence: None)
  Receive Date: 20100415
  Receipt Date: 20100415
  Transmission Date: 20101027
  Serious: Yes (Other)
  Sender: FDA-Public Use
  Company Number: None

PATIENT
  Age: 59 Year
  Sex: Female
  Weight: 73.6 kg

DRUGS (1)
  1. PATADAY [Suspect]
     Indication: EYE ALLERGY
     Dosage: DROP 1 X DAY EYE
     Dates: start: 20100318, end: 20100414

REACTIONS (2)
  - EYE IRRITATION [None]
  - PHOTOSENSITIVITY REACTION [None]
